FAERS Safety Report 16269330 (Version 3)
Quarter: 2020Q1

REPORT INFORMATION
  Report Type: Report from Study
  Country: US (occurrence: US)
  Receive Date: 20190503
  Receipt Date: 20200106
  Transmission Date: 20200409
  Serious: Yes (Other)
  Sender: FDA-Public Use
  Company Number: US-ROCHE-2311020

PATIENT
  Age: 51 Year
  Sex: Male
  Weight: 68.1 kg

DRUGS (1)
  1. OCREVUS [Suspect]
     Active Substance: OCRELIZUMAB
     Indication: RELAPSING-REMITTING MULTIPLE SCLEROSIS
     Route: 065
     Dates: start: 20190419

REACTIONS (2)
  - Dermatitis [Unknown]
  - Eye infection [Unknown]

NARRATIVE: CASE EVENT DATE: 20190426
